FAERS Safety Report 21071472 (Version 2)
Quarter: 2022Q4

REPORT INFORMATION
  Report Type: Spontaneous
  Country: DE (occurrence: DE)
  Receive Date: 20220712
  Receipt Date: 20221018
  Transmission Date: 20230112
  Serious: Yes (Death, Hospitalization)
  Sender: FDA-Public Use
  Company Number: DE-NOVARTISPH-NVSC2022DE157507

PATIENT
  Sex: Male
  Weight: 102 kg

DRUGS (8)
  1. CARBOPLATIN [Suspect]
     Active Substance: CARBOPLATIN
     Indication: Non-small cell lung cancer
     Dosage: 250 MG
     Route: 065
     Dates: start: 20211208, end: 20220105
  2. PEMETREXED [Suspect]
     Active Substance: PEMETREXED
     Indication: Non-small cell lung cancer
     Dosage: 600 MG
     Route: 065
     Dates: start: 20211208, end: 20220105
  3. PEMBROLIZUMAB [Suspect]
     Active Substance: PEMBROLIZUMAB
     Indication: Non-small cell lung cancer
     Dosage: 200 MG
     Route: 065
     Dates: start: 20211208, end: 20220105
  4. GRANULOCYTE COLONY-STIMULATING FACTOR NOS [Suspect]
     Active Substance: GRANULOCYTE COLONY-STIMULATING FACTOR NOS
     Indication: Product used for unknown indication
     Dosage: 30 MG, CYCLIC (30 MG, CYCLICAL)
     Route: 058
     Dates: start: 20211210, end: 202201
  5. ELIQUIS [Concomitant]
     Active Substance: APIXABAN
     Indication: Atrial fibrillation
     Dosage: UNK
     Route: 065
  6. ALOXI [Concomitant]
     Active Substance: PALONOSETRON HYDROCHLORIDE
     Indication: Product used for unknown indication
     Dosage: 5 MG, CYCLIC (5 MG, CYCLICAL)
     Route: 042
     Dates: start: 20211208, end: 20220105
  7. FOSAPREPITANT DIMEGLUMINE [Concomitant]
     Active Substance: FOSAPREPITANT DIMEGLUMINE
     Indication: Product used for unknown indication
     Dosage: 80 MG, CYCLIC (80 MG, CYCLICAL)
     Route: 042
     Dates: start: 20211208, end: 20220105
  8. DEXAMETHASONE [Concomitant]
     Active Substance: DEXAMETHASONE
     Indication: Product used for unknown indication
     Dosage: 0.5 MG, 1.5 MG, 4 MG, 8 MG; CYCLICAL
     Route: 065
     Dates: start: 20211208, end: 20220105

REACTIONS (4)
  - Death [Fatal]
  - Cardiac failure [Fatal]
  - Pancytopenia [Recovered/Resolved]
  - Pleural effusion [Recovered/Resolved]

NARRATIVE: CASE EVENT DATE: 20211221
